FAERS Safety Report 8387047-8 (Version None)
Quarter: 2012Q2

REPORT INFORMATION
  Report Type: 
  Country: None (occurrence: None)
  Receive Date: 20120525
  Receipt Date: 20120517
  Transmission Date: 20120825
  Serious: Yes (Hospitalization)
  Sender: FDA-Public Use
  Company Number: US-ABBOTT-12P-163-0936381-00

PATIENT
  Sex: Female
  Weight: 81.72 kg

DRUGS (2)
  1. UNKNOWN PSYCH MEDICATIONS [Concomitant]
  2. HUMIRA [Suspect]
     Indication: RHEUMATOID ARTHRITIS
     Dates: start: 20120222

REACTIONS (6)
  - SUICIDAL IDEATION [None]
  - ABASIA [None]
  - SPOUSAL ABUSE [None]
  - INJECTION SITE PAIN [None]
  - SEPSIS [None]
  - ARTHRALGIA [None]
